FAERS Safety Report 13672326 (Version 4)
Quarter: 2017Q3

REPORT INFORMATION
  Report Type: Report from Study
  Country: US (occurrence: US)
  Receive Date: 20170621
  Receipt Date: 20170901
  Transmission Date: 20171127
  Serious: Yes (Other)
  Sender: FDA-Public Use
  Company Number: US-AMGEN-USASP2017092169

PATIENT
  Age: 76 Year
  Sex: Male

DRUGS (3)
  1. ENBREL [Suspect]
     Active Substance: ETANERCEPT
     Indication: RHEUMATOID ARTHRITIS
     Dosage: 50 MG, QWK
     Route: 065
  2. PREDNISONE. [Concomitant]
     Active Substance: PREDNISONE
     Dosage: UNK
  3. ENBREL [Suspect]
     Active Substance: ETANERCEPT
     Dosage: 50 MG, EVERY 9 DAYS
     Route: 065
     Dates: end: 201708

REACTIONS (5)
  - Oropharyngeal pain [Unknown]
  - Rash macular [Not Recovered/Not Resolved]
  - Tendonitis [Unknown]
  - Rheumatoid arthritis [Unknown]
  - Paraesthesia [Not Recovered/Not Resolved]
